FAERS Safety Report 10498416 (Version 1)
Quarter: 2014Q4

REPORT INFORMATION
  Report Type: Spontaneous
  Country: US (occurrence: None)
  Receive Date: 20141003
  Receipt Date: 20141003
  Transmission Date: 20150528
  Serious: No
  Sender: FDA-Public Use
  Company Number: None

PATIENT
  Age: 32 Year
  Sex: Female
  Weight: 65.77 kg

DRUGS (1)
  1. ZOLMITRIPTAN. [Suspect]
     Active Substance: ZOLMITRIPTAN
     Indication: MIGRAINE
     Dosage: 1 PILL AS NEEDED
     Route: 048
     Dates: start: 20141002

REACTIONS (3)
  - Hyperaesthesia [None]
  - Pain [None]
  - Temperature intolerance [None]

NARRATIVE: CASE EVENT DATE: 20141002
